FAERS Safety Report 8085580-X (Version None)
Quarter: 2012Q1

REPORT INFORMATION
  Report Type: 
  Country: None (occurrence: None)
  Receive Date: 20120128
  Receipt Date: 20110520
  Transmission Date: 20120608
  Serious: No
  Sender: FDA-Public Use
  Company Number: US-ABBOTT-11P-163-0715759-00

PATIENT
  Sex: Female
  Weight: 56.75 kg

DRUGS (5)
  1. TRIAMTERENE AND HYDROCHLOROTHIAZIDE [Concomitant]
     Indication: HYPERTENSION
     Dosage: DAILY
  2. HUMIRA [Suspect]
     Indication: PSORIASIS
     Dates: start: 20100501, end: 20101201
  3. TACLONEX [Concomitant]
     Indication: PRODUCT USED FOR UNKNOWN INDICATION
     Dosage: AS NEEDED
     Route: 061
  4. HUMIRA [Suspect]
     Dates: start: 20110401
  5. OLUX [Concomitant]
     Indication: PRODUCT USED FOR UNKNOWN INDICATION
     Dosage: FOAM AS NEEDED
     Route: 061

REACTIONS (10)
  - PAIN OF SKIN [None]
  - SINUSITIS [None]
  - MALAISE [None]
  - BRONCHITIS [None]
  - PSORIASIS [None]
  - NASOPHARYNGITIS [None]
  - INFLUENZA LIKE ILLNESS [None]
  - INJECTION SITE PAIN [None]
  - PAIN [None]
  - SKIN DISORDER [None]
